FAERS Safety Report 9500551 (Version 1)
Quarter: 2013Q3

REPORT INFORMATION
  Report Type: Spontaneous
  Country: US (occurrence: None)
  Receive Date: 20130904
  Receipt Date: 20130904
  Transmission Date: 20140515
  Serious: No
  Sender: FDA-Public Use
  Company Number: None

PATIENT
  Sex: Female
  Weight: 66.23 kg

DRUGS (1)
  1. EUGENOL [Suspect]
     Dates: start: 1966

REACTIONS (1)
  - Bipolar disorder [None]
